FAERS Safety Report 8169985 (Version 3)
Quarter: 2012Q4

REPORT INFORMATION
  Report Type: 
  Country: US (occurrence: US)
  Receive Date: 20111005
  Receipt Date: 20121011
  Transmission Date: 20130627
  Serious: Yes (Hospitalization, Other)
  Sender: FDA-Public Use
  Company Number: US-ABBOTT-11P-163-0860234-00

PATIENT
  Age: 65 None
  Sex: Male
  Weight: 78.09 kg

DRUGS (9)
  1. KALETRA [Suspect]
     Indication: HIV TEST POSITIVE
     Dates: start: 201101
  2. ALFUZOSIN HYDROCHLORIDE [Suspect]
     Indication: BENIGN PROSTATIC HYPERPLASIA
     Dates: start: 2009, end: 201109
  3. TRUVADA [Concomitant]
     Indication: HIV TEST POSITIVE
  4. PRISTIQ [Concomitant]
     Indication: PRODUCT USED FOR UNKNOWN INDICATION
  5. CENTRUM SILVER [Concomitant]
     Indication: PRODUCT USED FOR UNKNOWN INDICATION
  6. ZINC [Concomitant]
     Indication: PRODUCT USED FOR UNKNOWN INDICATION
  7. IRON [Concomitant]
     Indication: PRODUCT USED FOR UNKNOWN INDICATION
  8. TESTIM [Concomitant]
     Indication: PRODUCT USED FOR UNKNOWN INDICATION
  9. LEVOTHYROXINE [Concomitant]
     Indication: PRODUCT USED FOR UNKNOWN INDICATION

REACTIONS (5)
  - Loss of consciousness [Recovered/Resolved]
  - Prostatomegaly [Recovered/Resolved]
  - Urinary retention [Recovered/Resolved]
  - Presyncope [Recovered/Resolved]
  - Drug interaction [Unknown]
